FAERS Safety Report 8865795 (Version 1)
Quarter: 2012Q4

REPORT INFORMATION
  Report Type: 
  Country: US (occurrence: US)
  Receive Date: 20121024
  Receipt Date: 20121024
  Transmission Date: 20130627
  Serious: Yes (Hospitalization, Other)
  Sender: FDA-Public Use
  Company Number: US-AMGEN-USASP2011069344

PATIENT
  Age: 71 Year
  Sex: Female
  Weight: 55.33 kg

DRUGS (4)
  1. ENBREL [Suspect]
     Indication: RHEUMATOID ARTHRITIS
     Dosage: 50 mg, qwk
     Route: 058
     Dates: start: 200604, end: 201108
  2. ENBREL [Suspect]
     Dosage: 50 mg, qwk
     Dates: start: 20100701, end: 201108
  3. METHOTREXATE [Suspect]
     Dosage: UNK
     Dates: start: 20101210, end: 20110830
  4. FOSAMAX [Concomitant]
     Dosage: UNK

REACTIONS (3)
  - Listeriosis [Unknown]
  - Meningitis listeria [Recovered/Resolved with Sequelae]
  - Arthritis [Not Recovered/Not Resolved]
